FAERS Safety Report 9038066 (Version 1)
Quarter: 2013Q1

REPORT INFORMATION
  Report Type: Spontaneous
  Country: US (occurrence: US)
  Receive Date: 20130129
  Receipt Date: 20130129
  Transmission Date: 20140127
  Serious: No
  Sender: FDA-Public Use
  Company Number: US-ABBOTT-12P-163-0955537-00

PATIENT
  Sex: Male

DRUGS (2)
  1. LUPRON DEPOT [Suspect]
     Indication: PROSTATE CANCER
     Dates: start: 2009
  2. LUPRON DEPOT [Suspect]
     Dates: end: 20110103

REACTIONS (6)
  - Cardiac disorder [Unknown]
  - Myalgia [Not Recovered/Not Resolved]
  - Heart rate irregular [Recovered/Resolved]
  - Bladder disorder [Recovering/Resolving]
  - Asthenia [Not Recovered/Not Resolved]
  - Balance disorder [Not Recovered/Not Resolved]
